FAERS Safety Report 23427156 (Version 4)
Quarter: 2024Q1

REPORT INFORMATION
  Report Type: Spontaneous
  Country: US (occurrence: US)
  Receive Date: 20240122
  Receipt Date: 20240321
  Transmission Date: 20240410
  Serious: No
  Sender: FDA-Public Use
  Company Number: US-PFIZER INC-202400000943

PATIENT
  Age: 14 Year
  Sex: Male
  Weight: 51.26 kg

DRUGS (2)
  1. GENOTROPIN [Suspect]
     Active Substance: SOMATROPIN
     Indication: Growth hormone deficiency
     Dosage: 2.8 DOSE UNITS UNKNOWN ONCE A DAY FOR SIX DAYS AND ONE DAY OFF
     Dates: start: 2022
  2. GENOTROPIN [Suspect]
     Active Substance: SOMATROPIN
     Dosage: 2.8MG 6 DAYS ON AND ONE NIGHT OFF
     Dates: start: 202303

REACTIONS (4)
  - Drug dose omission by device [Not Recovered/Not Resolved]
  - Product administered at inappropriate site [Unknown]
  - Device breakage [Unknown]
  - Device issue [Unknown]

NARRATIVE: CASE EVENT DATE: 20231228
